FAERS Safety Report 23561525 (Version 1)
Quarter: 2024Q1

REPORT INFORMATION
  Report Type: Spontaneous
  Country: US (occurrence: US)
  Receive Date: 20240225
  Receipt Date: 20240225
  Transmission Date: 20240410
  Serious: No
  Sender: FDA-Public Use
  Company Number: US-TEVA-VS-3141245

PATIENT
  Age: 75 Year
  Sex: Female

DRUGS (5)
  1. FLUTICASONE PROPIONATE AND SALMETEROL [Suspect]
     Active Substance: FLUTICASONE PROPIONATE\SALMETEROL XINAFOATE
     Indication: Chronic obstructive pulmonary disease
     Dosage: 113-14 MCG/DOSE-MCG/DOSE
     Route: 055
  2. FLUTICASONE PROPIONATE AND SALMETEROL [Suspect]
     Active Substance: FLUTICASONE PROPIONATE\SALMETEROL XINAFOATE
  3. Levothyroxine, [Concomitant]
  4. PROLIA [Concomitant]
     Active Substance: DENOSUMAB
  5. ALBUTEROL [Concomitant]
     Active Substance: ALBUTEROL

REACTIONS (4)
  - Taste disorder [Unknown]
  - Product use in unapproved indication [Unknown]
  - Osteopenia [Unknown]
  - Dyspnoea [Unknown]
